FAERS Safety Report 9948655 (Version 1)
Quarter: 2014Q1

REPORT INFORMATION
  Report Type: Spontaneous
  Country: US (occurrence: US)
  Receive Date: 20140304
  Receipt Date: 20140304
  Transmission Date: 20141002
  Serious: Yes (Hospitalization)
  Sender: FDA-Public Use
  Company Number: US-ROCHE-1357696

PATIENT
  Age: 49 Year
  Sex: Male

DRUGS (5)
  1. XOLAIR [Suspect]
     Indication: ASTHMA
     Route: 058
     Dates: start: 2013
  2. ADVAIR [Concomitant]
  3. SINGULAIR [Concomitant]
  4. PROAIR (UNITED STATES) [Concomitant]
  5. NASONEX [Concomitant]

REACTIONS (1)
  - Chest discomfort [Recovered/Resolved]
